FAERS Safety Report 12459536 (Version 1)
Quarter: 2016Q2

REPORT INFORMATION
  Report Type: Spontaneous
  Country: SE (occurrence: SE)
  Receive Date: 20160613
  Receipt Date: 20160613
  Transmission Date: 20160815
  Serious: Yes (Hospitalization)
  Sender: FDA-Public Use
  Company Number: SE-SA-2016SA110370

PATIENT
  Age: 75 Year
  Sex: Male

DRUGS (15)
  1. IMDUR [Concomitant]
     Active Substance: ISOSORBIDE MONONITRATE
  2. BISOPROLOL [Concomitant]
     Active Substance: BISOPROLOL
  3. ATORVASTATIN [Concomitant]
     Active Substance: ATORVASTATIN
  4. NOBLIGAN [Concomitant]
     Active Substance: TRAMADOL HYDROCHLORIDE
  5. FLAGYL [Concomitant]
     Active Substance: METRONIDAZOLE\METRONIDAZOLE HYDROCHLORIDE
  6. DIMOR [Concomitant]
     Active Substance: LOPERAMIDE
  7. RAMIPRIL. [Suspect]
     Active Substance: RAMIPRIL
     Route: 065
     Dates: end: 20160525
  8. TROMBYL [Concomitant]
     Active Substance: ASPIRIN
  9. FOLACIN [Concomitant]
     Active Substance: FOLIC ACID
  10. FELODIPINE. [Concomitant]
     Active Substance: FELODIPINE
  11. ELIQUIS [Concomitant]
     Active Substance: APIXABAN
  12. PANTOLOC [Concomitant]
     Active Substance: PANTOPRAZOLE SODIUM
  13. LEVAXIN [Concomitant]
     Active Substance: LEVOTHYROXINE SODIUM
  14. MIRTAZAPINE. [Concomitant]
     Active Substance: MIRTAZAPINE
  15. MULTAQ [Suspect]
     Active Substance: DRONEDARONE
     Indication: ATRIAL FIBRILLATION
     Route: 048
     Dates: start: 20160422, end: 20160525

REACTIONS (2)
  - Hyperkalaemia [Recovered/Resolved]
  - Renal failure [Recovered/Resolved]

NARRATIVE: CASE EVENT DATE: 20160525
